FAERS Safety Report 12474999 (Version 1)
Quarter: 2016Q2

REPORT INFORMATION
  Report Type: Spontaneous
  Country: IN (occurrence: IN)
  Receive Date: 20160617
  Receipt Date: 20160617
  Transmission Date: 20160815
  Serious: Yes (Life-Threatening, Other)
  Sender: FDA-Public Use
  Company Number: IN-SUN PHARMACEUTICAL INDUSTRIES LTD-2016R1-118653

PATIENT
  Age: 10 Month
  Weight: 4 kg

DRUGS (8)
  1. NOREPINEPHRINE [Concomitant]
     Active Substance: NOREPINEPHRINE\NOREPINEPHRINE BITARTRATE
     Indication: PRODUCT USED FOR UNKNOWN INDICATION
     Dosage: UNK
     Route: 065
  2. AMIODARONE [Interacting]
     Active Substance: AMIODARONE
     Indication: RIGHT VENTRICULAR DYSFUNCTION
     Dosage: UNK
     Route: 048
  3. MILRINONE [Concomitant]
     Active Substance: MILRINONE
     Indication: PRODUCT USED FOR UNKNOWN INDICATION
     Dosage: UNK
     Route: 065
  4. AMIODARONE [Interacting]
     Active Substance: AMIODARONE
     Indication: JUNCTIONAL ECTOPIC TACHYCARDIA
     Dosage: MAINTENANCE DOSE
     Route: 065
  5. FLUCONAZOLE. [Suspect]
     Active Substance: FLUCONAZOLE
     Indication: CANDIDA INFECTION
     Route: 048
  6. AMIODARONE [Interacting]
     Active Substance: AMIODARONE
     Indication: RIGHT VENTRICULAR DYSFUNCTION
     Dosage: UNK
     Route: 040
  7. FLUCONAZOLE. [Interacting]
     Active Substance: FLUCONAZOLE
     Indication: CANDIDA INFECTION
     Dosage: 10 MG/KG, DAILY
     Route: 042
  8. AMIODARONE [Interacting]
     Active Substance: AMIODARONE
     Indication: JUNCTIONAL ECTOPIC TACHYCARDIA

REACTIONS (4)
  - Bradycardia [Recovering/Resolving]
  - Cardiac arrest [Recovering/Resolving]
  - Drug interaction [Recovering/Resolving]
  - Toxicity to various agents [Recovering/Resolving]
